FAERS Safety Report 8172409-4 (Version None)
Quarter: 2012Q1

REPORT INFORMATION
  Report Type: 
  Country: None (occurrence: None)
  Receive Date: 20120224
  Receipt Date: 20120224
  Transmission Date: 20120608
  Serious: No
  Sender: FDA-Public Use
  Company Number: None

PATIENT
  Sex: Female

DRUGS (2)
  1. LAMICTAL [Suspect]
     Indication: BORDERLINE PERSONALITY DISORDER
     Dosage: 400MG QHS PO FOR YEARS
     Route: 048
  2. LAMICTAL [Suspect]
     Indication: DYSTHYMIC DISORDER
     Dosage: 400MG QHS PO FOR YEARS
     Route: 048

REACTIONS (2)
  - DISEASE RECURRENCE [None]
  - HEADACHE [None]
